FAERS Safety Report 20906351 (Version 1)
Quarter: 2022Q2

REPORT INFORMATION
  Report Type: Spontaneous
  Country: CN (occurrence: CN)
  Receive Date: 20220602
  Receipt Date: 20220602
  Transmission Date: 20220721
  Serious: Yes (Life-Threatening, Hospitalization, Other)
  Sender: FDA-Public Use
  Company Number: CN-ELI_LILLY_AND_COMPANY-CN202205012646

PATIENT
  Age: 75 Year
  Sex: Male
  Weight: 70 kg

DRUGS (2)
  1. HUMULIN N [Suspect]
     Active Substance: INSULIN HUMAN
     Indication: Type 2 diabetes mellitus
     Dosage: 16 INTERNATIONAL UNIT, BID
     Route: 058
     Dates: start: 20210702, end: 20220525
  2. ACARBOSE [Concomitant]
     Active Substance: ACARBOSE
     Indication: Type 2 diabetes mellitus
     Dosage: 50 MG, TID
     Route: 048
     Dates: start: 20210702, end: 20220525

REACTIONS (4)
  - Hypoglycaemic coma [Recovering/Resolving]
  - Cerebral infarction [Unknown]
  - Cerebral atrophy [Unknown]
  - Demyelination [Unknown]

NARRATIVE: CASE EVENT DATE: 20220525
